FAERS Safety Report 21512990 (Version 6)
Quarter: 2023Q2

REPORT INFORMATION
  Report Type: Report from Study
  Country: US (occurrence: US)
  Receive Date: 20221027
  Receipt Date: 20230512
  Transmission Date: 20230722
  Serious: Yes (Hospitalization, Other)
  Sender: FDA-Public Use
  Company Number: US-SERVIER-S22009688

PATIENT

DRUGS (13)
  1. VINCRISTINE [Suspect]
     Active Substance: VINCRISTINE
     Indication: Acute lymphocytic leukaemia
     Dosage: 2 MG, 1X/WEEK
     Route: 042
     Dates: start: 20220325, end: 20220325
  2. METHOTREXATE [Suspect]
     Active Substance: METHOTREXATE
     Indication: Acute lymphocytic leukaemia
     Dosage: 15 MG, OTHER
     Route: 037
     Dates: start: 20220401, end: 20220401
  3. METHOTREXATE [Suspect]
     Active Substance: METHOTREXATE
     Dosage: 207 MG, OTHER
     Route: 042
     Dates: start: 20220823, end: 20220823
  4. DEXAMETHASONE [Concomitant]
     Active Substance: DEXAMETHASONE
     Indication: Acute lymphocytic leukaemia
     Dosage: 10 MG, BID
     Route: 048
     Dates: start: 20220325, end: 20220331
  5. DAUNORUBICIN [Concomitant]
     Active Substance: DAUNORUBICIN
     Indication: Acute lymphocytic leukaemia
     Dosage: 55 MG, 1X/WEEK
     Route: 042
     Dates: start: 20220325, end: 20220325
  6. CYTARABINE [Concomitant]
     Active Substance: CYTARABINE
     Indication: Acute lymphocytic leukaemia
     Dosage: 50 MG, OTHER
     Route: 037
     Dates: start: 20220324, end: 20220324
  7. CYTARABINE [Concomitant]
     Active Substance: CYTARABINE
     Dosage: 158 MG, PRN
     Route: 058
     Dates: start: 20220510, end: 20220510
  8. CYTARABINE [Concomitant]
     Active Substance: CYTARABINE
     Dosage: 158 MG, PRN
     Route: 042
     Dates: start: 20221229, end: 20221229
  9. CYCLOPHOSPHAMIDE [Concomitant]
     Active Substance: CYCLOPHOSPHAMIDE
     Indication: Acute lymphocytic leukaemia
     Dosage: 2110 MG, PRN
     Route: 042
     Dates: start: 20220510, end: 20220510
  10. MERCAPTOPURINE [Concomitant]
     Active Substance: MERCAPTOPURINE
     Indication: Acute lymphocytic leukaemia
     Dosage: 125 MG, QD
     Route: 048
     Dates: start: 20220510, end: 20220726
  11. DOXORUBICIN HYDROCHLORIDE [Concomitant]
     Active Substance: DOXORUBICIN HYDROCHLORIDE
     Indication: Acute lymphocytic leukaemia
     Dosage: 51 MG, PRN
     Route: 042
     Dates: start: 20221025, end: 20221025
  12. LORAZEPAM [Concomitant]
     Active Substance: LORAZEPAM
     Indication: Anxiety
     Dosage: 0.5 MG, PRN
     Route: 048
     Dates: start: 20220322
  13. LEVOCARNITINE [Concomitant]
     Active Substance: LEVOCARNITINE
     Indication: Supportive care
     Dosage: 660 MG, TID
     Route: 048
     Dates: start: 20220327

REACTIONS (2)
  - Thrombocytopenia [Recovering/Resolving]
  - Drug hypersensitivity [Recovered/Resolved]

NARRATIVE: CASE EVENT DATE: 20220927
